FAERS Safety Report 7249138 (Version 2)
Quarter: 2013Q1

REPORT INFORMATION
  Report Type: Spontaneous
  Country: US (occurrence: US)
  Receive Date: 20100119
  Receipt Date: 20130222
  Transmission Date: 20140127
  Serious: Yes (Hospitalization)
  Sender: FDA-Public Use
  Company Number: US-PERRIGO-10US006277

PATIENT
  Age: 59 Year
  Sex: Female

DRUGS (1)
  1. ACETAMINOPHEN 650MG ER 544 [Suspect]
     Indication: INTENTIONAL OVERDOSE
     Dosage: UNK, UNK
     Route: 048

REACTIONS (8)
  - Coma [Recovered/Resolved]
  - Respiratory distress [Recovered/Resolved]
  - Metabolic acidosis [Recovered/Resolved]
  - Analgesic drug level increased [Recovered/Resolved]
  - Aspartate aminotransferase increased [Recovered/Resolved]
  - Alanine aminotransferase increased [Recovered/Resolved]
  - Blood creatine phosphokinase increased [Unknown]
  - Intentional overdose [Recovered/Resolved]
